FAERS Safety Report 13318633 (Version 3)
Quarter: 2019Q3

REPORT INFORMATION
  Report Type: Spontaneous
  Country: JP (occurrence: JP)
  Receive Date: 20170310
  Receipt Date: 20190911
  Transmission Date: 20191004
  Serious: Yes (Hospitalization, Other)
  Sender: FDA-Public Use
  Company Number: JP-JNJFOC-20170205467

PATIENT
  Age: 79 Year
  Sex: Male
  Weight: 48.3 kg

DRUGS (5)
  1. RIVAROXABAN [Suspect]
     Active Substance: RIVAROXABAN
     Indication: ATRIAL FIBRILLATION
     Route: 048
     Dates: end: 20170121
  2. RIVAROXABAN [Suspect]
     Active Substance: RIVAROXABAN
     Route: 048
  3. FLUITRAN [Concomitant]
     Active Substance: TRICHLORMETHIAZIDE
     Indication: CARDIAC FAILURE CONGESTIVE
     Dosage: DAILY DOSE 1 MG
     Route: 048
     Dates: end: 20170122
  4. DIGOXIN. [Concomitant]
     Active Substance: DIGOXIN
     Indication: CARDIAC FAILURE CONGESTIVE
     Dosage: 0.0625MG/DAY
     Route: 048
     Dates: end: 2017
  5. DIART [Concomitant]
     Active Substance: AZOSEMIDE
     Indication: CARDIAC FAILURE CONGESTIVE
     Dosage: DAILY DOSE 30 MG
     Route: 048
     Dates: end: 20170122

REACTIONS (2)
  - Duodenal ulcer haemorrhage [Recovering/Resolving]
  - Cerebral infarction [Recovering/Resolving]

NARRATIVE: CASE EVENT DATE: 20170121
